FAERS Safety Report 4543125-2 (Version None)
Quarter: 2004Q4

REPORT INFORMATION
  Report Type: 
  Country: None (occurrence: None)
  Receive Date: 20041229
  Receipt Date: 20041216
  Transmission Date: 20050328
  Serious: Yes (Hospitalization)
  Sender: FDA-Public Use
  Company Number: D01200404805

PATIENT
  Age: 56 Year
  Sex: Male

DRUGS (5)
  1. (OXALIPLATIN)- SOLUTION-85MG/M2 [Suspect]
     Indication: CHEMOTHERAPY NEUROTOXICITY ATTENUATION
     Dosage: 85MG/M2 Q2W
     Route: 042
     Dates: start: 20041026, end: 20041026
  2. (OXALIPLATIN)- SOLUTION-85MG/M2 [Suspect]
     Indication: COLORECTAL CANCER METASTATIC
     Dosage: 85MG/M2 Q2W
     Route: 042
     Dates: start: 20041026, end: 20041026
  3. FLUOROURACIL [Suspect]
     Dosage: 400MG/M2 AS IV BOLUS THEN 600MG/M2 AS 22 HOURS CONTINUOUS INFUSION D1-D2 Q2W
     Route: 042
     Dates: start: 20041026, end: 20041027
  4. SR57746 OR PLACEBO CAPSULE 1 MG [Suspect]
     Dosage: 1 MG QD
     Route: 048
     Dates: start: 20040428, end: 20041016
  5. (LEUCOVORIN) SOLUTION 200MG/M2 [Suspect]
     Dosage: 200MG/M2 AS 2 HOURS INFUSION ON D1 -D2 Q2W
     Dates: start: 20041026, end: 20041027

REACTIONS (8)
  - CANDIDIASIS [None]
  - ELECTROCARDIOGRAM T WAVE AMPLITUDE DECREASED [None]
  - LUNG ABSCESS [None]
  - PNEUMONIA PRIMARY ATYPICAL [None]
  - PULMONARY FIBROSIS [None]
  - PULMONARY TUBERCULOSIS [None]
  - SPUTUM CULTURE POSITIVE [None]
  - STAPHYLOCOCCAL INFECTION [None]
